FAERS Safety Report 20572811 (Version 2)
Quarter: 2022Q2

REPORT INFORMATION
  Report Type: Spontaneous
  Country: US (occurrence: None)
  Receive Date: 20220309
  Receipt Date: 20220422
  Transmission Date: 20220721
  Serious: No
  Sender: FDA-Public Use
  Company Number: 2022A076553

PATIENT
  Sex: Female

DRUGS (2)
  1. BUDESONIDE\FORMOTEROL\GLYCOPYRRONIUM [Suspect]
     Active Substance: BUDESONIDE\FORMOTEROL\GLYCOPYRRONIUM
     Indication: Asthma
     Dosage: 2 PUFF, TWO TIMES A DAY
     Route: 055
  2. BUDESONIDE\FORMOTEROL\GLYCOPYRRONIUM [Suspect]
     Active Substance: BUDESONIDE\FORMOTEROL\GLYCOPYRRONIUM
     Indication: Dyspnoea
     Dosage: 2 PUFF, TWO TIMES A DAY
     Route: 055

REACTIONS (5)
  - Decreased activity [Unknown]
  - Dyspnoea [Unknown]
  - Wheezing [Unknown]
  - Product dose omission issue [Unknown]
  - Drug delivery system malfunction [Unknown]
